FAERS Safety Report 4580057-8 (Version None)
Quarter: 2005Q1

REPORT INFORMATION
  Report Type: 
  Country: None (occurrence: None)
  Receive Date: 20050214
  Receipt Date: 20050202
  Transmission Date: 20050727
  Serious: Yes (Other)
  Sender: FDA-Public Use
  Company Number: JP-JNJFOC-20050201062

PATIENT
  Age: 79 Year
  Sex: Male

DRUGS (1)
  1. OFLOCET [Suspect]
     Indication: PNEUMONIA
     Route: 049
     Dates: start: 20041201

REACTIONS (1)
  - MUSCLE INJURY [None]
